FAERS Safety Report 8287219-7 (Version None)
Quarter: 2012Q2

REPORT INFORMATION
  Report Type: 
  Country: None (occurrence: None)
  Receive Date: 20120416
  Receipt Date: 20120411
  Transmission Date: 20120825
  Serious: Yes (Life-Threatening)
  Sender: FDA-Public Use
  Company Number: JP-ASTRAZENECA-2012SE23913

PATIENT
  Age: 46 Year
  Sex: Male

DRUGS (2)
  1. CRESTOR [Suspect]
     Route: 048
  2. UNSPECIFIED 3 OTHER DRUG [Suspect]
     Route: 048

REACTIONS (1)
  - SUICIDE ATTEMPT [None]
